FAERS Safety Report 13763843 (Version 1)
Quarter: 2017Q3

REPORT INFORMATION
  Report Type: Spontaneous
  Country: JP (occurrence: JP)
  Receive Date: 20170718
  Receipt Date: 20170718
  Transmission Date: 20171127
  Serious: Yes (Hospitalization, Other)
  Sender: FDA-Public Use
  Company Number: JP-PFIZER INC-2017261603

PATIENT
  Age: 39 Year
  Sex: Female
  Weight: 45 kg

DRUGS (4)
  1. CEFTRIAXONE NA [Suspect]
     Active Substance: CEFTRIAXONE
     Indication: TUBO-OVARIAN ABSCESS
     Dosage: 1 G, 1X/DAY
     Route: 041
     Dates: start: 20170501, end: 20170518
  2. ZITHROMAC 500MG [Suspect]
     Active Substance: AZITHROMYCIN ANHYDROUS
     Indication: CHLAMYDIAL CERVICITIS
     Dosage: 500 MG, 1X/DAY
     Route: 041
     Dates: start: 20170519, end: 20170521
  3. CEFTRIAXONE NA [Suspect]
     Active Substance: CEFTRIAXONE
     Dosage: 1 G, 2X/DAY
     Route: 041
     Dates: start: 20170519, end: 20170523
  4. LOXOPROFEN EMEC [Concomitant]
     Active Substance: LOXOPROFEN
     Indication: PAIN
     Dosage: UNK, AS NEEDED
     Route: 048
     Dates: start: 20170519

REACTIONS (2)
  - Neutropenia [Recovered/Resolved]
  - Agranulocytosis [Recovered/Resolved]

NARRATIVE: CASE EVENT DATE: 20170522
